FAERS Safety Report 21729944 (Version 1)
Quarter: 2022Q4

REPORT INFORMATION
  Report Type: Spontaneous
  Country: US (occurrence: None)
  Receive Date: 20221214
  Receipt Date: 20221214
  Transmission Date: 20230113
  Serious: Yes (Life-Threatening)
  Sender: FDA-Public Use
  Company Number: None

PATIENT
  Age: 65 Year
  Sex: Female
  Weight: 65 kg

DRUGS (1)
  1. PACLITAXEL [Suspect]
     Active Substance: PACLITAXEL
     Indication: Lung neoplasm malignant
     Dosage: OTHER QUANTITY : 80/250 MG/ML;?
     Route: 041
     Dates: start: 20221212

REACTIONS (5)
  - Chest discomfort [None]
  - Defaecation urgency [None]
  - Infusion related reaction [None]
  - Anaphylactic reaction [None]
  - Acute respiratory failure [None]

NARRATIVE: CASE EVENT DATE: 20221212
